FAERS Safety Report 5349541-3 (Version None)
Quarter: 2007Q2

REPORT INFORMATION
  Report Type: 
  Country: None (occurrence: None)
  Receive Date: 20070607
  Receipt Date: 20070528
  Transmission Date: 20071010
  Serious: Yes (Death, Life-Threatening)
  Sender: FDA-Public Use
  Company Number: JP-ROCHE-485999

PATIENT
  Age: 67 Year
  Sex: Male

DRUGS (4)
  1. ROCEPHIN [Suspect]
     Indication: PNEUMONIA
     Dosage: DRUG NAME REORTED AS ROCEPHIN 1G BAG.
     Route: 041
     Dates: start: 20070211, end: 20070213
  2. HEPARIN [Concomitant]
     Route: 042
     Dates: start: 20061218, end: 20070213
  3. OMEPRAL [Concomitant]
     Route: 042
     Dates: start: 20061218
  4. CARBENIN [Concomitant]
     Route: 041
     Dates: start: 20070213, end: 20070301

REACTIONS (2)
  - CEREBELLAR INFARCTION [None]
  - THROMBOCYTOPENIA [None]
